FAERS Safety Report 7509160-7 (Version None)
Quarter: 2011Q2

REPORT INFORMATION
  Report Type: 
  Country: None (occurrence: None)
  Receive Date: 20110527
  Receipt Date: 20110520
  Transmission Date: 20111010
  Serious: Yes (Death)
  Sender: FDA-Public Use
  Company Number: CO-JNJFOC-20110510640

PATIENT
  Age: 89 Year
  Sex: Male

DRUGS (1)
  1. GALANTAMINE HYDROBROMIDE [Suspect]
     Indication: SENILE DEMENTIA
     Route: 048
     Dates: start: 20100729

REACTIONS (1)
  - CARDIO-RESPIRATORY ARREST [None]
